FAERS Safety Report 15576696 (Version 1)
Quarter: 2018Q4

REPORT INFORMATION
  Report Type: Spontaneous
  Country: US (occurrence: US)
  Receive Date: 20181101
  Receipt Date: 20181101
  Transmission Date: 20190205
  Serious: No
  Sender: FDA-Public Use
  Company Number: US-GLAXOSMITHKLINE-US2018194958

PATIENT
  Age: 22 Year
  Sex: Female

DRUGS (1)
  1. ABREVA [Suspect]
     Active Substance: DOCOSANOL
     Indication: ORAL HERPES
     Dosage: UNK
     Dates: start: 20181022, end: 20181023

REACTIONS (2)
  - Oral discomfort [Unknown]
  - Lip swelling [Recovering/Resolving]

NARRATIVE: CASE EVENT DATE: 20181022
